FAERS Safety Report 4664526-8 (Version None)
Quarter: 2005Q2

REPORT INFORMATION
  Report Type: 
  Country: None (occurrence: None)
  Receive Date: 20050518
  Receipt Date: 20050111
  Transmission Date: 20051028
  Serious: Yes (Other)
  Sender: FDA-Public Use
  Company Number: FRWYE329611JAN05

PATIENT
  Age: 45 Year
  Sex: Male

DRUGS (3)
  1. ENBREL [Suspect]
     Indication: RHEUMATOID ARTHRITIS
     Route: 058
     Dates: start: 20030821, end: 20040314
  2. SALAZOPYRIN [Suspect]
     Indication: RHEUMATOID ARTHRITIS
     Dosage: UNKNOWN
     Route: 048
     Dates: start: 20040701
  3. VALSARTAN [Suspect]
     Indication: HYPERTENSION
     Dosage: UNKNOWN

REACTIONS (3)
  - CYTOMEGALOVIRUS ANTIBODY POSITIVE [None]
  - HEPATIC FIBROSIS [None]
  - HEPATITIS C [None]
